FAERS Safety Report 19330120 (Version 1)
Quarter: 2021Q2

REPORT INFORMATION
  Report Type: Other
  Country: US (occurrence: US)
  Receive Date: 20210528
  Receipt Date: 20210528
  Transmission Date: 20210717
  Serious: Yes (Other)
  Sender: FDA-Public Use
  Company Number: US-DEXPHARM-20210718

PATIENT
  Sex: Female

DRUGS (2)
  1. DOSTARLIMAB [Suspect]
     Active Substance: DOSTARLIMAB
     Indication: OVARIAN CANCER STAGE IV
  2. OMEPRAZOLE. [Interacting]
     Active Substance: OMEPRAZOLE

REACTIONS (2)
  - Drug interaction [Unknown]
  - Subacute cutaneous lupus erythematosus [Recovering/Resolving]
